FAERS Safety Report 9958630 (Version 2)
Quarter: 2015Q4

REPORT INFORMATION
  Report Type: Report from Study
  Country: US (occurrence: US)
  Receive Date: 20140305
  Receipt Date: 20151118
  Transmission Date: 20160305
  Serious: Yes (Other)
  Sender: FDA-Public Use
  Company Number: US-ROCHE-1345792

PATIENT
  Sex: Male

DRUGS (9)
  1. MYDRIACYL [Concomitant]
     Active Substance: TROPICAMIDE
     Route: 065
  2. CARBOXYMETHYLCELLULOSE SODIUM. [Concomitant]
     Active Substance: CARBOXYMETHYLCELLULOSE SODIUM
  3. LUCENTIS [Suspect]
     Active Substance: RANIBIZUMAB
     Indication: MACULAR OEDEMA
  4. LUCENTIS [Suspect]
     Active Substance: RANIBIZUMAB
     Indication: DIABETIC RETINOPATHY
     Route: 050
     Dates: start: 20110722
  5. AVASTIN [Suspect]
     Active Substance: BEVACIZUMAB
     Indication: PRODUCT USED FOR UNKNOWN INDICATION
     Route: 065
  6. TIMOLOL. [Concomitant]
     Active Substance: TIMOLOL
     Route: 065
  7. PHENYLEPHRINE [Concomitant]
     Active Substance: PHENYLEPHRINE\PHENYLEPHRINE HYDROCHLORIDE
     Route: 065
  8. FLUOROMETHOLONE. [Concomitant]
     Active Substance: FLUOROMETHOLONE
     Route: 065
  9. THERATEARS [Concomitant]
     Active Substance: CARBOXYMETHYLCELLULOSE SODIUM

REACTIONS (15)
  - Eye pain [Unknown]
  - Retinal exudates [Unknown]
  - Pupillary reflex impaired [Unknown]
  - Retinal haemorrhage [Unknown]
  - Cataract nuclear [Unknown]
  - Intraocular pressure increased [Unknown]
  - Cataract [Unknown]
  - Punctate keratitis [Unknown]
  - Retinal oedema [Unknown]
  - Corneal neovascularisation [Unknown]
  - Visual field defect [Unknown]
  - Ulcerative keratitis [Unknown]
  - Macular scar [Unknown]
  - Macular ischaemia [Unknown]
  - Photopsia [Unknown]
